FAERS Safety Report 14081804 (Version 1)
Quarter: 2017Q4

REPORT INFORMATION
  Report Type: Spontaneous
  Country: JP (occurrence: JP)
  Receive Date: 20171013
  Receipt Date: 20171013
  Transmission Date: 20180321
  Serious: Yes (Hospitalization)
  Sender: FDA-Public Use
  Company Number: JP-PFIZER INC-2017439206

PATIENT
  Sex: Female

DRUGS (2)
  1. CELECOX [Suspect]
     Active Substance: CELECOXIB
     Indication: SPINAL COMPRESSION FRACTURE
     Dosage: 100 MG, TWICE DAILY, IN THE MORNING AND EVENING
     Route: 048
  2. LYRICA [Concomitant]
     Active Substance: PREGABALIN
     Dosage: UNK, UNKNOWN FREQ.
     Route: 048

REACTIONS (2)
  - Pain [Unknown]
  - Spinal pain [Recovering/Resolving]

NARRATIVE: CASE EVENT DATE: 2017
